FAERS Safety Report 23130486 (Version 1)
Quarter: 2023Q4

REPORT INFORMATION
  Report Type: Spontaneous
  Country: GB (occurrence: GB)
  Receive Date: 20231031
  Receipt Date: 20231031
  Transmission Date: 20240109
  Serious: Yes (Other)
  Sender: FDA-Public Use
  Company Number: GB-MHRA-MED-202303250926097970-ZKBFM

PATIENT
  Age: 23 Year
  Sex: Female

DRUGS (1)
  1. SERTRALINE [Suspect]
     Active Substance: SERTRALINE HYDROCHLORIDE
     Indication: Depression
     Dosage: 50MG IN THE MORNING; ;
     Route: 065
     Dates: start: 20230324

REACTIONS (14)
  - Maternal exposure during pregnancy [Unknown]
  - Vomiting [Not Recovered/Not Resolved]
  - Tremor [Not Recovered/Not Resolved]
  - Hyperhidrosis [Recovering/Resolving]
  - Paraesthesia [Recovering/Resolving]
  - Flatulence [Not Recovered/Not Resolved]
  - Abdominal pain [Recovering/Resolving]
  - Hot flush [Recovering/Resolving]
  - Dizziness [Recovering/Resolving]
  - Feeling abnormal [Recovering/Resolving]
  - Muscle spasms [Recovering/Resolving]
  - Feeling drunk [Recovered/Resolved]
  - Thirst [Not Recovered/Not Resolved]
  - Irregular breathing [Not Recovered/Not Resolved]

NARRATIVE: CASE EVENT DATE: 20230324
